FAERS Safety Report 13484833 (Version 3)
Quarter: 2017Q2

REPORT INFORMATION
  Report Type: Report from Study
  Country: US (occurrence: US)
  Receive Date: 20170425
  Receipt Date: 20170602
  Transmission Date: 20170830
  Serious: Yes (Other)
  Sender: FDA-Public Use
  Company Number: PHEH2017US011901

PATIENT
  Sex: Female

DRUGS (1)
  1. MYFORTIC [Suspect]
     Active Substance: MYCOPHENOLATE SODIUM
     Indication: RENAL TRANSPLANT
     Route: 065

REACTIONS (10)
  - Influenza [Unknown]
  - Herpes zoster [Unknown]
  - Dehydration [Unknown]
  - Blood glucose increased [Unknown]
  - Sensitivity to weather change [Unknown]
  - Tremor [Not Recovered/Not Resolved]
  - Blood creatine increased [Unknown]
  - Malaise [Unknown]
  - Diabetes mellitus [Unknown]
  - Hyperhidrosis [Not Recovered/Not Resolved]
